FAERS Safety Report 5655700-2 (Version None)
Quarter: 2008Q1

REPORT INFORMATION
  Report Type: 
  Country: None (occurrence: None)
  Receive Date: 20080307
  Receipt Date: 20080229
  Transmission Date: 20080703
  Serious: Yes (Hospitalization)
  Sender: FDA-Public Use
  Company Number: US-BAXTER-2008BH001892

PATIENT
  Age: 55 Year
  Sex: Female
  Weight: 44 kg

DRUGS (12)
  1. HEPARIN SODIUM [Suspect]
     Indication: PROPHYLAXIS
     Route: 033
     Dates: start: 20070101, end: 20071201
  2. HEPARIN SODIUM [Suspect]
     Route: 033
     Dates: start: 20070101, end: 20071201
  3. HEPARIN SODIUM [Suspect]
     Route: 033
     Dates: start: 20080201, end: 20080301
  4. HEPARIN SODIUM [Suspect]
     Route: 033
     Dates: start: 20080201, end: 20080301
  5. EPOGEN [Concomitant]
     Indication: ANAEMIA
     Dosage: DOSE UNIT:UNKNOWN
     Route: 058
  6. PHOSLO [Concomitant]
     Indication: RENAL FAILURE CHRONIC
     Dosage: DOSE UNIT:UNKNOWN
     Route: 048
  7. CLARITIN [Concomitant]
     Indication: HYPERSENSITIVITY
     Dosage: DOSE UNIT:UNKNOWN
     Route: 048
  8. PREVACID [Concomitant]
     Indication: GASTROOESOPHAGEAL REFLUX DISEASE
     Dosage: DOSE UNIT:UNKNOWN
     Route: 048
  9. IMODIUM A-D [Concomitant]
     Indication: DIARRHOEA
     Dosage: DOSE UNIT:UNKNOWN
     Route: 048
  10. DIANEAL [Concomitant]
     Indication: RENAL FAILURE CHRONIC
     Route: 033
     Dates: start: 20070101
  11. MEDROL [Concomitant]
     Indication: SYSTEMIC LUPUS ERYTHEMATOSUS
     Dosage: DOSE UNIT:UNKNOWN
     Route: 048
  12. COZAAR [Concomitant]
     Indication: HYPERTENSION
     Dosage: DOSE UNIT:UNKNOWN
     Route: 048

REACTIONS (4)
  - GANGRENE [None]
  - LEG AMPUTATION [None]
  - PHARMACEUTICAL PRODUCT COMPLAINT [None]
  - PRURITUS [None]
